FAERS Safety Report 12998065 (Version 7)
Quarter: 2017Q2

REPORT INFORMATION
  Report Type: Report from Study
  Country: US (occurrence: US)
  Receive Date: 20161205
  Receipt Date: 20170404
  Transmission Date: 20170830
  Serious: Yes (Life-Threatening, Hospitalization)
  Sender: FDA-Public Use
  Company Number: US-ROCHE-1861980

PATIENT
  Age: 50 Year
  Sex: Female
  Weight: 59.9 kg

DRUGS (29)
  1. ZOSYN [Concomitant]
     Active Substance: PIPERACILLIN SODIUM\TAZOBACTAM SODIUM
     Route: 042
  2. LASIX [Concomitant]
     Active Substance: FUROSEMIDE
     Route: 048
     Dates: start: 20161115, end: 20161116
  3. MIRENA [Concomitant]
     Active Substance: LEVONORGESTREL
     Indication: CONTRACEPTION
     Route: 015
  4. BUMEX [Concomitant]
     Active Substance: BUMETANIDE
     Route: 042
  5. BLINDED OBINUTUZUMAB [Suspect]
     Active Substance: OBINUTUZUMAB
     Indication: LUPUS NEPHRITIS
     Dosage: DATE OF MOST RECENT DOSE OF BLINDED OBINUTUZUMAB PRIOR TO AE ONSET 15/NOV/2016
     Route: 042
     Dates: start: 20151115
  6. DOCUSATE SODIUM. [Concomitant]
     Active Substance: DOCUSATE SODIUM
     Route: 048
     Dates: start: 20161030
  7. PREDNISONE. [Concomitant]
     Active Substance: PREDNISONE
     Route: 065
  8. PRILOSEC [Concomitant]
     Active Substance: OMEPRAZOLE MAGNESIUM
  9. BLINDED METHYLPREDNISOLONE [Suspect]
     Active Substance: METHYLPREDNISOLONE
     Indication: LUPUS NEPHRITIS
     Dosage: DATE OF MOST RECENT DOSE OF BLINDED METHYLPREDNISOLONE PRIOR TO AE ONSET 15/NOV/2016
     Route: 042
     Dates: start: 20161115
  10. LASIX [Concomitant]
     Active Substance: FUROSEMIDE
     Route: 048
     Dates: start: 20161104, end: 20161115
  11. VALCYTE [Concomitant]
     Active Substance: VALGANCICLOVIR HYDROCHLORIDE
     Route: 048
     Dates: start: 20170107
  12. MYCOPHENOLATE MOFETIL. [Suspect]
     Active Substance: MYCOPHENOLATE MOFETIL
     Dosage: FOR 1 WEEK
     Route: 048
  13. LOSARTAN. [Concomitant]
     Active Substance: LOSARTAN
     Route: 048
     Dates: start: 20161027, end: 20161115
  14. LASIX [Concomitant]
     Active Substance: FUROSEMIDE
     Route: 048
     Dates: start: 20161029, end: 20161104
  15. DAPSONE. [Concomitant]
     Active Substance: DAPSONE
     Indication: LUPUS NEPHRITIS
     Dosage: EVERY MONDAY, WEDNESDAY AND FRIDAY
     Route: 048
     Dates: start: 20161030
  16. PREDNISONE. [Concomitant]
     Active Substance: PREDNISONE
     Indication: LUPUS NEPHRITIS
     Route: 048
     Dates: start: 20161012
  17. GANCICLOVIR. [Concomitant]
     Active Substance: GANCICLOVIR
     Route: 065
     Dates: start: 20161124, end: 20170107
  18. HYDROCORTISONE. [Concomitant]
     Active Substance: HYDROCORTISONE
     Route: 065
     Dates: start: 20161202
  19. METOPROLOL. [Concomitant]
     Active Substance: METOPROLOL
  20. MYCOPHENOLATE MOFETIL. [Suspect]
     Active Substance: MYCOPHENOLATE MOFETIL
     Indication: LUPUS NEPHRITIS
     Dosage: 17/NOV/2016, RECEIVED THE MOST RECENT DOSE OF MYCOPHENOLATE MOFETIL,1250 MG AM AND 1000 MG PM
     Route: 048
     Dates: end: 20161119
  21. MYCOPHENOLATE MOFETIL. [Suspect]
     Active Substance: MYCOPHENOLATE MOFETIL
     Dosage: FOR 1 WEEK
     Route: 048
     Dates: start: 20161012
  22. MYCOPHENOLATE MOFETIL. [Suspect]
     Active Substance: MYCOPHENOLATE MOFETIL
     Route: 048
     Dates: start: 20161121, end: 20161124
  23. OSCAL [Concomitant]
     Active Substance: CALCIUM CARBONATE
     Route: 048
     Dates: start: 20161027
  24. CYTOGAM [Concomitant]
     Active Substance: HUMAN CYTOMEGALOVIRUS IMMUNE GLOBULIN
  25. VITAMIN D3 [Concomitant]
     Active Substance: CHOLECALCIFEROL
     Route: 048
     Dates: start: 20161018
  26. LACTULOSE. [Concomitant]
     Active Substance: LACTULOSE
     Route: 048
     Dates: start: 20161030
  27. LOSARTAN. [Concomitant]
     Active Substance: LOSARTAN
     Route: 048
     Dates: start: 20161115
  28. LEVONORGESTREL. [Concomitant]
     Active Substance: LEVONORGESTREL
     Dosage: 20 OTHER
     Route: 065
     Dates: start: 2008
  29. DELTASONE (PREDNISONE) [Concomitant]
     Route: 048

REACTIONS (3)
  - Intestinal perforation [Recovered/Resolved]
  - Disseminated cytomegaloviral infection [Recovered/Resolved]
  - Klebsiella bacteraemia [Recovered/Resolved]

NARRATIVE: CASE EVENT DATE: 20161121
